FAERS Safety Report 20503693 (Version 4)
Quarter: 2022Q2

REPORT INFORMATION
  Report Type: Spontaneous
  Country: BR (occurrence: BR)
  Receive Date: 20220222
  Receipt Date: 20220603
  Transmission Date: 20220721
  Serious: Yes (Other)
  Sender: FDA-Public Use
  Company Number: BR-SAARTEMIS-SAC202006170348

PATIENT
  Age: 9 Year
  Sex: Female
  Weight: 30 kg

DRUGS (4)
  1. LARONIDASE [Suspect]
     Active Substance: LARONIDASE
     Indication: Mucopolysaccharidosis I
     Dosage: 4 DF, Q15D
     Route: 042
  2. LARONIDASE [Suspect]
     Active Substance: LARONIDASE
     Dosage: 20 DF, Q15D
     Route: 042
     Dates: start: 20210825, end: 2021
  3. LARONIDASE [Suspect]
     Active Substance: LARONIDASE
     Dosage: 20 DF, Q15D
     Route: 042
     Dates: start: 2021
  4. LARONIDASE [Suspect]
     Active Substance: LARONIDASE
     Dosage: UNK, QOW
     Route: 042
     Dates: start: 20220319

REACTIONS (15)
  - Immunodeficiency [Unknown]
  - Inappropriate schedule of product administration [Unknown]
  - Intentional product misuse [Unknown]
  - Foot deformity [Unknown]
  - Knee deformity [Unknown]
  - Body temperature increased [Recovered/Resolved]
  - Feeling hot [Recovered/Resolved]
  - Illness [Recovered/Resolved]
  - Oropharyngeal pain [Recovered/Resolved]
  - Tooth disorder [Unknown]
  - Toothache [Recovering/Resolving]
  - Tooth development disorder [Recovering/Resolving]
  - Nasopharyngitis [Recovered/Resolved]
  - Pyrexia [Unknown]
  - Product dose omission in error [Unknown]

NARRATIVE: CASE EVENT DATE: 20200613
